FAERS Safety Report 23497057 (Version 1)
Quarter: 2024Q1

REPORT INFORMATION
  Report Type: Spontaneous
  Country: CN (occurrence: CN)
  Receive Date: 20240208
  Receipt Date: 20240208
  Transmission Date: 20240409
  Serious: Yes (Hospitalization)
  Sender: FDA-Public Use
  Company Number: CN-BAYER-2024A021258

PATIENT
  Age: 87 Year
  Sex: Female
  Weight: 74 kg

DRUGS (5)
  1. GLUCOBAY [Interacting]
     Active Substance: ACARBOSE
     Indication: Diabetes mellitus
     Dosage: 100 MG, TID
     Route: 048
     Dates: end: 20231205
  2. GLIPIZIDE [Interacting]
     Active Substance: GLIPIZIDE
     Indication: Diabetes mellitus
     Dosage: 3 DF, QD
     Route: 048
     Dates: start: 20231129, end: 20231202
  3. SAXAGLIPTIN [Interacting]
     Active Substance: SAXAGLIPTIN
     Indication: Diabetes mellitus
     Dosage: 5 MG, QD
     Route: 048
     Dates: start: 20231129, end: 20231204
  4. SAXAGLIPTIN [Interacting]
     Active Substance: SAXAGLIPTIN
     Indication: Diabetes mellitus
     Dosage: 1 DF, QD
     Route: 048
     Dates: start: 20231205
  5. DAPAGLIFLOZIN [Interacting]
     Active Substance: DAPAGLIFLOZIN
     Indication: Blood glucose abnormal
     Dosage: UNK
     Dates: start: 20230820, end: 20231129

REACTIONS (3)
  - Hypoglycaemia [Recovered/Resolved]
  - Constipation [None]
  - Blood glucose abnormal [None]

NARRATIVE: CASE EVENT DATE: 20230101
